FAERS Safety Report 4336974-7 (Version None)
Quarter: 2004Q1

REPORT INFORMATION
  Report Type: 
  Country: None (occurrence: None)
  Receive Date: 20040329
  Receipt Date: 20040205
  Transmission Date: 20041129
  Serious: No
  Sender: FDA-Public Use
  Company Number: USA040258612

PATIENT
  Age: 17 Year
  Sex: Male
  Weight: 57 kg

DRUGS (3)
  1. STRATTERA [Suspect]
     Dosage: 40 MG
     Dates: start: 20040129
  2. MULTI-VITAMIN [Concomitant]
  3. ADDERALL 10 [Concomitant]

REACTIONS (3)
  - DIZZINESS [None]
  - FATIGUE [None]
  - HEART RATE IRREGULAR [None]
